FAERS Safety Report 9435448 (Version 1)
Quarter: 2013Q3

REPORT INFORMATION
  Report Type: Spontaneous
  Country: US (occurrence: None)
  Receive Date: 20130730
  Receipt Date: 20130730
  Transmission Date: 20140515
  Serious: Yes (Death)
  Sender: FDA-Public Use
  Company Number: US-ZYDUS-001843

PATIENT
  Age: 48 Year
  Sex: Male

DRUGS (2)
  1. WARFARIN (WARFARIN) [Suspect]
     Indication: DEEP VEIN THROMBOSIS
  2. IFOSFAMIDE (IFOSFAMIDE) [Concomitant]

REACTIONS (3)
  - Epistaxis [None]
  - Synovial sarcoma metastatic [None]
  - Malignant neoplasm progression [None]
